FAERS Safety Report 23373883 (Version 1)
Quarter: 2024Q1

REPORT INFORMATION
  Report Type: Spontaneous
  Country: US (occurrence: US)
  Receive Date: 20240105
  Receipt Date: 20240105
  Transmission Date: 20240410
  Serious: Yes (Other)
  Sender: FDA-Public Use
  Company Number: US-RADIUS HEALTH INC.-2023US006786

PATIENT
  Sex: Female

DRUGS (2)
  1. TYMLOS [Suspect]
     Active Substance: ABALOPARATIDE
     Indication: Senile osteoporosis
     Dosage: 80 MICROGRAM, QD
     Route: 058
     Dates: start: 202304
  2. MIACALCIN [Suspect]
     Active Substance: CALCITONIN SALMON
     Indication: Product used for unknown indication

REACTIONS (3)
  - Thrombosis [Unknown]
  - Blood disorder [Unknown]
  - Blood calcium increased [Unknown]
